FAERS Safety Report 26072370 (Version 2)
Quarter: 2025Q4

REPORT INFORMATION
  Report Type: Spontaneous
  Country: US (occurrence: US)
  Receive Date: 20251120
  Receipt Date: 20251221
  Transmission Date: 20260117
  Serious: No
  Sender: SUNOVION
  Company Number: US-SMPA-2025SPA013975

PATIENT
  Age: 79 Year
  Sex: Female

DRUGS (1)
  1. GEMTESA [Suspect]
     Active Substance: VIBEGRON
     Indication: Hypertonic bladder
     Dosage: UNK
     Route: 048

REACTIONS (2)
  - Headache [Unknown]
  - Product use issue [Unknown]

NARRATIVE: CASE EVENT DATE: 20251001
